FAERS Safety Report 20981133 (Version 3)
Quarter: 2022Q3

REPORT INFORMATION
  Report Type: Spontaneous
  Country: US (occurrence: US)
  Receive Date: 20220620
  Receipt Date: 20220908
  Transmission Date: 20221027
  Serious: Yes (Other)
  Sender: FDA-Public Use
  Company Number: US-PFIZER INC-202200843041

PATIENT
  Age: 62 Year
  Sex: Female
  Weight: 83.46 kg

DRUGS (2)
  1. PAXLOVID [Suspect]
     Active Substance: NIRMATRELVIR\RITONAVIR
     Indication: COVID-19 treatment
     Dosage: 3 TABLETS, TWICE A DAY
     Route: 048
     Dates: start: 20220509, end: 20220514
  2. PAXLOVID [Suspect]
     Active Substance: NIRMATRELVIR\RITONAVIR
     Dosage: 1 PILL IN THE MORNING AND 2 IN THE EVENING
     Route: 048
     Dates: start: 20220513, end: 20220514

REACTIONS (9)
  - Paralysis [Not Recovered/Not Resolved]
  - Dehydration [Unknown]
  - Hypokalaemia [Recovering/Resolving]
  - Asthenia [Recovering/Resolving]
  - Myalgia [Recovering/Resolving]
  - Nerve injury [Unknown]
  - Weight decreased [Unknown]
  - Gait inability [Unknown]
  - Incorrect dose administered [Unknown]

NARRATIVE: CASE EVENT DATE: 20220501
